FAERS Safety Report 24765800 (Version 2)
Quarter: 2025Q1

REPORT INFORMATION
  Report Type: Report from Study
  Country: US (occurrence: US)
  Receive Date: 20241223
  Receipt Date: 20250108
  Transmission Date: 20250409
  Serious: Yes (Death)
  Sender: BAYER HEALTHCARE PHARMACEUTICALS INC.
  Company Number: US-BAYER-2024A180989

PATIENT
  Age: 83 Year
  Sex: Male

DRUGS (1)
  1. ADEMPAS [Suspect]
     Active Substance: RIOCIGUAT
     Indication: Pulmonary hypertension
     Dates: start: 20210602, end: 20241123

REACTIONS (1)
  - Pulmonary hypertension [Fatal]

NARRATIVE: CASE EVENT DATE: 20241123
